FAERS Safety Report 4910281-3 (Version None)
Quarter: 2006Q1

REPORT INFORMATION
  Report Type: 
  Country: None (occurrence: None)
  Receive Date: 20060213
  Receipt Date: 20050315
  Transmission Date: 20060701
  Serious: Yes (Hospitalization, Other)
  Sender: FDA-Public Use
  Company Number: US-MERCK-0503USA03238

PATIENT
  Age: 78 Year
  Sex: Female
  Weight: 102 kg

DRUGS (7)
  1. VIOXX [Suspect]
     Indication: ARTHRITIS
     Route: 048
     Dates: start: 20000701, end: 20030101
  2. VICODIN [Concomitant]
     Route: 065
  3. CELEBREX [Concomitant]
     Route: 065
  4. DETROL [Concomitant]
     Route: 065
  5. FOSAMAX [Concomitant]
     Route: 065
  6. ASPIRIN [Concomitant]
     Route: 065
  7. ATENOLOL [Concomitant]
     Route: 065

REACTIONS (11)
  - BACK DISORDER [None]
  - CARDIAC ARREST [None]
  - CARDIAC FAILURE [None]
  - CEREBROVASCULAR ACCIDENT [None]
  - CHEST PAIN [None]
  - HEPATOCELLULAR DAMAGE [None]
  - MYOCARDIAL INFARCTION [None]
  - OVERDOSE [None]
  - RENAL DISORDER [None]
  - THROMBOSIS [None]
  - ULCER [None]
